FAERS Safety Report 8163924-8 (Version None)
Quarter: 2012Q1

REPORT INFORMATION
  Report Type: 
  Country: None (occurrence: None)
  Receive Date: 20120224
  Receipt Date: 20120221
  Transmission Date: 20120608
  Serious: Yes (Hospitalization)
  Sender: FDA-Public Use
  Company Number: IT-JNJFOC-20110505036

PATIENT
  Age: 29 Year
  Sex: Female

DRUGS (4)
  1. MYCOPHENOLATE MOFETIL [Concomitant]
     Route: 065
  2. SIROLIMUS [Concomitant]
     Route: 065
  3. CEFTRIAXONE [Concomitant]
     Route: 065
  4. LEVOFLOXACIN [Suspect]
     Indication: PNEUMONIA
     Route: 065

REACTIONS (2)
  - ERYTHEMA NODOSUM [None]
  - DIARRHOEA [None]
